FAERS Safety Report 13419371 (Version 2)
Quarter: 2017Q2

REPORT INFORMATION
  Report Type: Spontaneous
  Country: US (occurrence: US)
  Receive Date: 20170407
  Receipt Date: 20170607
  Transmission Date: 20170830
  Serious: No
  Sender: FDA-Public Use
  Company Number: US-JNJFOC-20170315566

PATIENT
  Age: 40 Year
  Sex: Male
  Weight: 127.37 kg

DRUGS (6)
  1. RISPERDAL CONSTA [Suspect]
     Active Substance: RISPERIDONE
     Indication: SCHIZOPHRENIA
     Route: 030
     Dates: start: 2006
  2. RISPERDAL CONSTA [Suspect]
     Active Substance: RISPERIDONE
     Indication: MAJOR DEPRESSION
     Route: 030
     Dates: start: 2006
  3. BUSPAR [Concomitant]
     Active Substance: BUSPIRONE HYDROCHLORIDE
     Indication: ANXIETY
     Route: 048
     Dates: start: 2006
  4. COGENTIN [Concomitant]
     Active Substance: BENZTROPINE MESYLATE
     Indication: EXTRAPYRAMIDAL DISORDER
     Route: 048
     Dates: start: 2006
  5. DEPAKOTE [Concomitant]
     Active Substance: DIVALPROEX SODIUM
     Indication: DRUG THERAPY
     Dosage: STRENGTH: 500 MG
     Route: 048
     Dates: start: 2006
  6. VISTARIL [Concomitant]
     Active Substance: HYDROXYZINE PAMOATE
     Indication: ANXIETY
     Route: 048
     Dates: start: 2006

REACTIONS (2)
  - Device leakage [Unknown]
  - Drug dose omission [Unknown]

NARRATIVE: CASE EVENT DATE: 20170314
